FAERS Safety Report 20478211 (Version 2)
Quarter: 2022Q1

REPORT INFORMATION
  Report Type: Spontaneous
  Country: PT (occurrence: PT)
  Receive Date: 20220216
  Receipt Date: 20220225
  Transmission Date: 20220423
  Serious: Yes (Death, Other)
  Sender: FDA-Public Use
  Company Number: PT-ROCHE-3015086

PATIENT
  Age: 60 Year
  Sex: Female
  Weight: 63 kg

DRUGS (29)
  1. LETROZOLE [Suspect]
     Active Substance: LETROZOLE
     Indication: HER2 positive breast cancer
     Dosage: UNK, EVERY 3 WEEKS
     Route: 048
     Dates: start: 20200207
  2. PACLITAXEL [Suspect]
     Active Substance: PACLITAXEL
     Indication: HER2 positive breast cancer
     Dosage: UNK UNK, EVERY WEEK
     Route: 065
     Dates: start: 20190724, end: 20200207
  3. PERTUZUMAB [Suspect]
     Active Substance: PERTUZUMAB
     Indication: HER2 positive breast cancer
     Dosage: UNK, EVERY 3 WEEKS (MOST RECENT DOSE PRIOR TO THE EVENT: 14/MAY/2021)
     Route: 065
     Dates: start: 20190724
  4. TRASTUZUMAB [Suspect]
     Active Substance: TRASTUZUMAB
     Indication: HER2 positive breast cancer
     Dosage: UNK, EVERY 3 WEEKS (MOST RECENT DOSE PRIOR TO THE EVENT: 14/MAY/2021)
     Route: 065
     Dates: start: 20190724
  5. ASPIRIN [Concomitant]
     Active Substance: ASPIRIN
     Indication: Cerebrovascular accident
     Dosage: UNK (ONGOING = NOT CHECKED)
     Route: 065
     Dates: start: 20211012, end: 20211022
  6. AMLODIPINE [Concomitant]
     Active Substance: AMLODIPINE BESYLATE
     Indication: Cerebrovascular accident
     Dosage: UNK (ONGOING = NOT CHECKED)
     Route: 065
     Dates: start: 20211011, end: 20211013
  7. BISOPROLOL [Concomitant]
     Active Substance: BISOPROLOL
     Indication: Cerebrovascular accident
     Dosage: UNK (ONGOING = NOT CHECKED)
     Route: 065
     Dates: end: 20211107
  8. BISOPROLOL [Concomitant]
     Active Substance: BISOPROLOL
     Dosage: UNK (ONGOING = NOT CHECKED)
     Route: 065
     Dates: start: 20211012, end: 20211022
  9. CALCIUM\VITAMIN D [Concomitant]
     Active Substance: CALCIUM\VITAMIN D
     Indication: Product used for unknown indication
     Dosage: UNK (ONGOING = NOT CHECKED)
     Route: 065
     Dates: end: 20211107
  10. DEXAMETHASONE [Concomitant]
     Active Substance: DEXAMETHASONE
     Indication: Product used for unknown indication
     Dosage: UNK (ONGOING = NOT CHECKED)
     Route: 065
     Dates: end: 20211107
  11. DULOXETINE [Concomitant]
     Active Substance: DULOXETINE
     Indication: Product used for unknown indication
     Dosage: UNK (ONGOING = NOT CHECKED)
     Route: 065
     Dates: start: 20200522, end: 20211107
  12. ENOXAPARIN [Concomitant]
     Active Substance: ENOXAPARIN
     Indication: Cerebrovascular accident
     Dosage: UNK (ONGOING = NOT CHECKED)
     Route: 065
     Dates: start: 20211011, end: 20211018
  13. FUROSEMIDE [Concomitant]
     Active Substance: FUROSEMIDE
     Indication: Cerebrovascular accident
     Dosage: UNK (ONGOING = NOT CHECKED)
     Route: 065
     Dates: start: 20211012, end: 20211022
  14. LACTULOSE [Concomitant]
     Active Substance: LACTULOSE
     Indication: Product used for unknown indication
     Dosage: UNK (ONGOING = NOT CHECKED)
     Dates: end: 20211107
  15. LOPERAMIDE [Concomitant]
     Active Substance: LOPERAMIDE
     Indication: Product used for unknown indication
     Dosage: UNK (ONGOING = NOT CHECKED)
     Route: 065
     Dates: end: 20211107
  16. POLYETHYLENE GLYCOLS [Concomitant]
     Active Substance: POLYETHYLENE GLYCOLS
     Indication: Product used for unknown indication
     Dosage: UNK (ONGOING = NOT CHECKED)
     Route: 065
     Dates: start: 20200124, end: 20211107
  17. METAMIZOLE [Concomitant]
     Active Substance: METAMIZOLE
     Indication: Product used for unknown indication
     Dosage: UNK (ONGOING = NOT CHECKED)
     Route: 065
     Dates: end: 20211107
  18. METOCLOPRAMIDE [Concomitant]
     Active Substance: METOCLOPRAMIDE
     Indication: Product used for unknown indication
     Dosage: UNK (ONGOING = NOT CHECKED)
     Route: 065
     Dates: end: 20211107
  19. PANTOPRAZOLE [Concomitant]
     Active Substance: PANTOPRAZOLE
     Indication: Cerebrovascular accident
     Dosage: UNK (ONGOING = NOT CHECKED)
     Route: 065
     Dates: start: 20211012, end: 20211022
  20. PANTOPRAZOLE [Concomitant]
     Active Substance: PANTOPRAZOLE
     Dosage: UNK (ONGOING = NOT CHECKED )
     Route: 065
     Dates: end: 20211107
  21. ACETAMINOPHEN [Concomitant]
     Active Substance: ACETAMINOPHEN
     Indication: Product used for unknown indication
     Dosage: UNK (ONGOING = NOT CHECKED)
     Route: 065
     Dates: end: 20211107
  22. PERINDOPRIL [Concomitant]
     Active Substance: PERINDOPRIL
     Indication: Cerebrovascular accident
     Dosage: UNK (ONGOING = NOT CHECKED)
     Route: 065
     Dates: start: 20191129, end: 20211107
  23. PERINDOPRIL [Concomitant]
     Active Substance: PERINDOPRIL
     Dosage: UNK (ONGOING = NOT CHECKED)
     Route: 065
     Dates: start: 20211012, end: 20211022
  24. PREGABALIN [Concomitant]
     Active Substance: PREGABALIN
     Indication: Product used for unknown indication
     Dosage: UNK (ONGOING = NOT CHECKED)
     Route: 065
     Dates: end: 20211107
  25. ROSUVASTATIN [Concomitant]
     Active Substance: ROSUVASTATIN
     Indication: Cerebrovascular accident
     Dosage: UNK (ONGOING = NOT CHECKED)
     Route: 065
     Dates: start: 20211013, end: 20211021
  26. TRAMADOL [Concomitant]
     Active Substance: TRAMADOL
     Indication: Product used for unknown indication
     Dosage: UNK (ONGOING = NOT CHECKED)
     Route: 065
     Dates: end: 20211107
  27. TRAMADOL [Concomitant]
     Active Substance: TRAMADOL
     Dosage: UNK (ONGOING = NOT CHECKED)
     Route: 065
     Dates: end: 20211107
  28. ZOLEDRONIC ACID [Concomitant]
     Active Substance: ZOLEDRONIC ACID
     Indication: Product used for unknown indication
     Dosage: UNK (ONGOING = NOT CHECKED)
     Route: 065
     Dates: start: 20190723, end: 20211107
  29. ZOLPIDEM [Concomitant]
     Active Substance: ZOLPIDEM TARTRATE
     Indication: Product used for unknown indication
     Dosage: UNK (ONGOING = NOT CHECKED)
     Route: 065
     Dates: end: 20211107

REACTIONS (1)
  - Acute kidney injury [Fatal]

NARRATIVE: CASE EVENT DATE: 20211029
